FAERS Safety Report 5944193-3 (Version None)
Quarter: 2008Q4

REPORT INFORMATION
  Report Type: 
  Country: None (occurrence: None)
  Receive Date: 20081106
  Receipt Date: 20081029
  Transmission Date: 20090506
  Serious: Yes (Death)
  Sender: FDA-Public Use
  Company Number: US-ABBOTT-08P-163-0472091-00

PATIENT
  Sex: Female

DRUGS (3)
  1. NORVIR [Suspect]
     Indication: DRUG EXPOSURE DURING PREGNANCY
     Route: 048
  2. ATAZANAVIR SULFATE [Concomitant]
     Indication: DRUG EXPOSURE DURING PREGNANCY
  3. ABACAVIR SULFATE/LAMIVUDINE [Concomitant]
     Indication: DRUG EXPOSURE DURING PREGNANCY
     Route: 064

REACTIONS (1)
  - PREMATURE BABY [None]
